FAERS Safety Report 13177126 (Version 1)
Quarter: 2017Q1

REPORT INFORMATION
  Report Type: Report from Study
  Country: US (occurrence: US)
  Receive Date: 20170201
  Receipt Date: 20170201
  Transmission Date: 20170428
  Serious: No
  Sender: FDA-Public Use
  Company Number: US-EXELIXIS-CABO-16007128

PATIENT
  Sex: Female

DRUGS (7)
  1. COMETRIQ [Suspect]
     Active Substance: CABOZANTINIB S-MALATE
     Indication: THYROID CANCER
     Dosage: 140 MG, QD
     Route: 048
     Dates: start: 20141020, end: 20141026
  2. ZANTAC [Concomitant]
     Active Substance: RANITIDINE HYDROCHLORIDE
  3. AMLODIPINE [Concomitant]
     Active Substance: AMLODIPINE BESYLATE
  4. LEVOTHYROXINE. [Concomitant]
     Active Substance: LEVOTHYROXINE
  5. COMETRIQ [Suspect]
     Active Substance: CABOZANTINIB S-MALATE
     Indication: GASTRIC CANCER
     Dosage: 80 MGM, QOD
     Route: 048
     Dates: start: 201606
  6. PRILOSEC [Concomitant]
     Active Substance: OMEPRAZOLE MAGNESIUM
  7. VITAMIN B12 [Concomitant]
     Active Substance: CYANOCOBALAMIN

REACTIONS (9)
  - Alopecia [Unknown]
  - Hair colour changes [Unknown]
  - Skin ulcer [Unknown]
  - Diarrhoea [Unknown]
  - Decreased appetite [Unknown]
  - Weight decreased [Unknown]
  - Vomiting [Unknown]
  - Limb discomfort [Not Recovered/Not Resolved]
  - Abdominal discomfort [Not Recovered/Not Resolved]
